FAERS Safety Report 7479878-3 (Version None)
Quarter: 2011Q2

REPORT INFORMATION
  Report Type: 
  Country: None (occurrence: None)
  Receive Date: 20110515
  Receipt Date: 20100413
  Transmission Date: 20111010
  Serious: No
  Sender: FDA-Public Use
  Company Number: US-NOVEN-ALL1-2010-02213

PATIENT

DRUGS (4)
  1. DAYTRANA [Suspect]
     Dosage: 20 MG, 1X/DAY:QD
     Route: 048
     Dates: start: 20080101
  2. KLONOPIN [Concomitant]
     Dosage: .1 MG, 2X/DAY:BID
     Route: 048
  3. RISPERDAL [Concomitant]
     Dosage: 1 MG, 1X/DAY:QD
     Route: 048
  4. GUANFACINE HYDROCHLORIDE [Concomitant]
     Dosage: UNK MG, UNKNOWN
     Route: 048

REACTIONS (7)
  - DRUG ADMINISTERED AT INAPPROPRIATE SITE [None]
  - DRUG INEFFECTIVE [None]
  - FEELING ABNORMAL [None]
  - WRONG TECHNIQUE IN DRUG USAGE PROCESS [None]
  - OFF LABEL USE [None]
  - APPLICATION SITE ERYTHEMA [None]
  - PRODUCT QUALITY ISSUE [None]
